FAERS Safety Report 14346210 (Version 1)
Quarter: 2018Q1

REPORT INFORMATION
  Report Type: Report from Study
  Country: CO (occurrence: CO)
  Receive Date: 20180103
  Receipt Date: 20180103
  Transmission Date: 20180509
  Serious: Yes (Hospitalization)
  Sender: FDA-Public Use
  Company Number: PHHY2017CO179586

PATIENT
  Sex: Male
  Weight: 78 kg

DRUGS (3)
  1. REVOLADE [Suspect]
     Active Substance: ELTROMBOPAG
     Indication: THROMBOCYTOPENIC PURPURA
     Dosage: 50 MG, QD
     Route: 048
     Dates: start: 20140615
  2. REVOLADE [Suspect]
     Active Substance: ELTROMBOPAG
     Dosage: 50 MG, (TWO TABLETS IN THE MORNING)
     Route: 048
  3. REVOLADE [Suspect]
     Active Substance: ELTROMBOPAG
     Dosage: 50 MG, BID
     Route: 048

REACTIONS (4)
  - Mouth haemorrhage [Unknown]
  - Psychiatric symptom [Unknown]
  - Wrong technique in product usage process [Unknown]
  - Platelet count decreased [Recovered/Resolved]
